FAERS Safety Report 4434849-6 (Version None)
Quarter: 2004Q3

REPORT INFORMATION
  Report Type: 
  Country: None (occurrence: None)
  Receive Date: 20040820
  Receipt Date: 20040820
  Transmission Date: 20050211
  Serious: Yes (Hospitalization)
  Sender: FDA-Public Use
  Company Number: None

PATIENT
  Age: 84 Year
  Sex: Female
  Weight: 89.8122 kg

DRUGS (10)
  1. TAXOTERE [Suspect]
     Dates: start: 20040618, end: 20040730
  2. DECADRON [Concomitant]
  3. HYZAAR [Concomitant]
  4. TIAZAC [Concomitant]
  5. TOPROL-XL [Concomitant]
  6. LIPITOR [Concomitant]
  7. ACTONEL [Concomitant]
  8. VIOXX [Concomitant]
  9. NEXIUM [Concomitant]
  10. RESTORIL [Concomitant]

REACTIONS (6)
  - CHILLS [None]
  - LETHARGY [None]
  - LOOSE STOOLS [None]
  - MALAISE [None]
  - PYREXIA [None]
  - URINARY HESITATION [None]
